FAERS Safety Report 13602213 (Version 1)
Quarter: 2017Q2

REPORT INFORMATION
  Report Type: Spontaneous
  Country: US (occurrence: US)
  Receive Date: 20170601
  Receipt Date: 20170601
  Transmission Date: 20170830
  Serious: Yes (Other)
  Sender: FDA-Public Use
  Company Number: US-LUNDBECK-DKLU2031873

PATIENT
  Age: 51 Year
  Sex: Female

DRUGS (1)
  1. NORTHERA [Suspect]
     Active Substance: DROXIDOPA
     Indication: PRODUCT USED FOR UNKNOWN INDICATION
     Dosage: SCHEDULE C/TITRATION COMPLETE (FIXED DOSE)
     Route: 048
     Dates: start: 20170505

REACTIONS (7)
  - Nausea [Unknown]
  - Dizziness [Unknown]
  - Headache [Unknown]
  - Hypotension [Unknown]
  - Blindness unilateral [Unknown]
  - Cataract [Unknown]
  - Peripheral arterial occlusive disease [Unknown]

NARRATIVE: CASE EVENT DATE: 201705
